FAERS Safety Report 4341228-9 (Version None)
Quarter: 2004Q2

REPORT INFORMATION
  Report Type: 
  Country: None (occurrence: None)
  Receive Date: 20040419
  Receipt Date: 20011023
  Transmission Date: 20050107
  Serious: Yes (Hospitalization, Congenital Anomaly)
  Sender: FDA-Public Use
  Company Number: FR-MERCK-01106111

PATIENT
  Age: 0 Day
  Sex: Female
  Weight: 3 kg

DRUGS (10)
  1. DIDANOSINE [Concomitant]
     Indication: HIV INFECTION
     Dates: start: 19980618, end: 19981105
  2. DIDANOSINE [Concomitant]
     Indication: PROPHYLAXIS AGAINST HIV INFECTION
     Dates: start: 19981106, end: 19981201
  3. CRIXIVAN [Suspect]
     Dates: start: 19980207, end: 19980901
  4. LAMIVUDINE [Concomitant]
     Indication: HIV INFECTION
     Dates: start: 19980207, end: 19980618
  5. NELFINAVIR MESYLATE [Concomitant]
     Indication: HIV INFECTION
     Dates: start: 19980914, end: 19981105
  6. NEVIRAPINE [Concomitant]
     Indication: HIV INFECTION
     Dates: start: 19980914, end: 19981105
  7. NEVIRAPINE [Concomitant]
     Indication: PROPHYLAXIS AGAINST HIV INFECTION
     Dates: start: 19981106, end: 19981106
  8. STAVUDINE [Concomitant]
     Indication: HIV INFECTION
     Dates: start: 19980207, end: 19980618
  9. STAVUDINE [Concomitant]
     Indication: PROPHYLAXIS AGAINST HIV INFECTION
     Dates: start: 19981106, end: 19981201
  10. ZIDOVUDINE [Concomitant]
     Indication: HIV INFECTION
     Dates: start: 19980618, end: 19981105

REACTIONS (16)
  - BLOOD BILIRUBIN INCREASED [None]
  - BLOOD LACTIC ACID INCREASED [None]
  - BLOOD TRIGLYCERIDES INCREASED [None]
  - CAESAREAN SECTION [None]
  - CANDIDIASIS [None]
  - CARDIAC MURMUR [None]
  - CEREBRAL DISORDER [None]
  - COMPLICATIONS OF MATERNAL EXPOSURE TO THERAPEUTIC DRUGS [None]
  - CONJUNCTIVITIS [None]
  - EUSTACHIAN TUBE DYSFUNCTION [None]
  - EYELID RETRACTION [None]
  - HYPERTONIA [None]
  - MATERNAL DRUGS AFFECTING FOETUS [None]
  - NEUTROPENIA [None]
  - PULMONARY VALVE STENOSIS [None]
  - TACHYPNOEA [None]
